FAERS Safety Report 10044247 (Version 1)
Quarter: 2014Q1

REPORT INFORMATION
  Report Type: Spontaneous
  Country: US (occurrence: US)
  Receive Date: 20140328
  Receipt Date: 20140328
  Transmission Date: 20141002
  Serious: Yes (Other)
  Sender: FDA-Public Use
  Company Number: US-ROCHE-1369156

PATIENT
  Sex: Female

DRUGS (26)
  1. NAPROSYN [Suspect]
     Indication: PRODUCT USED FOR UNKNOWN INDICATION
     Route: 065
  2. XOLAIR [Suspect]
     Indication: PRODUCT USED FOR UNKNOWN INDICATION
     Route: 065
  3. ATIVAN [Concomitant]
     Route: 065
  4. DEPAKOTE ER [Concomitant]
     Route: 065
  5. RISPERDAL [Concomitant]
     Route: 065
  6. SINGULAIR [Concomitant]
     Route: 065
  7. ADVAIR [Concomitant]
     Route: 065
  8. CLARITIN [Concomitant]
     Route: 065
  9. ZYRTEC [Concomitant]
     Route: 065
  10. ZANTAC [Concomitant]
     Route: 065
  11. ALAVERT [Concomitant]
  12. ALBUTEROL [Concomitant]
  13. MORPHINE IR [Concomitant]
     Route: 065
  14. MORPHINE ER [Concomitant]
     Route: 065
  15. IPRATROPIUM BROMIDE [Concomitant]
     Route: 065
  16. ALBUTEROL SULFATE [Concomitant]
     Route: 065
  17. FIORICET [Concomitant]
     Route: 065
  18. PROTONIX (UNITED STATES) [Concomitant]
     Route: 065
  19. BUMEX [Concomitant]
     Route: 065
  20. BYSTOLIC [Concomitant]
     Route: 065
  21. PRAVASTATIN [Concomitant]
     Route: 065
  22. LATANOPROST [Concomitant]
     Route: 065
  23. ASPIRIN [Concomitant]
     Route: 065
  24. SENNA [Concomitant]
     Route: 065
  25. FEOSOL [Concomitant]
     Route: 065
  26. PROZAC [Concomitant]

REACTIONS (4)
  - Rectal haemorrhage [Unknown]
  - Anaphylactic reaction [Unknown]
  - Dyspepsia [Unknown]
  - Diarrhoea [Unknown]
